FAERS Safety Report 4370391-9 (Version None)
Quarter: 2004Q2

REPORT INFORMATION
  Report Type: 
  Country: None (occurrence: None)
  Receive Date: 20040603
  Receipt Date: 20040226
  Transmission Date: 20050107
  Serious: No
  Sender: FDA-Public Use
  Company Number: US-BRISTOL-MYERS SQUIBB COMPANY-12517785

PATIENT
  Age: 25 Year
  Sex: Male
  Weight: 109 kg

DRUGS (3)
  1. ABILIFY [Suspect]
     Indication: SCHIZOPHRENIA
     Route: 048
     Dates: start: 20040218, end: 20040225
  2. PREVACID [Concomitant]
  3. NAVANE [Concomitant]

REACTIONS (2)
  - ANXIETY [None]
  - HEADACHE [None]
